FAERS Safety Report 7980077 (Version 6)
Quarter: 2014Q2

REPORT INFORMATION
  Report Type: Spontaneous
  Country: JP (occurrence: JP)
  Receive Date: 20110608
  Receipt Date: 20140410
  Transmission Date: 20141212
  Serious: Yes (Hospitalization)
  Sender: FDA-Public Use
  Company Number: JP-B.I. PHARMACEUTICALS,INC./RIDGEFIELD-2011-BP-14594NB

PATIENT
  Age: 70 Year
  Sex: Male
  Weight: 60 kg

DRUGS (2)
  1. PRAZAXA [Suspect]
     Indication: PROPHYLAXIS
     Dosage: 220 MG
     Route: 048
     Dates: start: 20110523
  2. TAKEPRON [Concomitant]
     Indication: DYSPEPSIA
     Dosage: 15 MG
     Route: 048
     Dates: start: 20110523

REACTIONS (2)
  - Transient ischaemic attack [Recovered/Resolved]
  - Embolic stroke [Recovered/Resolved]
